FAERS Safety Report 5284201-9 (Version None)
Quarter: 2007Q2

REPORT INFORMATION
  Report Type: 
  Country: None (occurrence: None)
  Receive Date: 20070403
  Receipt Date: 20070321
  Transmission Date: 20071010
  Serious: Yes (Death)
  Sender: FDA-Public Use
  Company Number: US-NOVOPROD-259106

PATIENT
  Age: 92 Year
  Sex: Female
  Weight: 91 kg

DRUGS (9)
  1. NOVOSEVEN [Suspect]
     Indication: TRAUMATIC HAEMORRHAGE
     Dosage: 40 UG/KG, SINGLE
     Route: 042
     Dates: start: 20061102
  2. NOVOSEVEN [Suspect]
     Indication: ROAD TRAFFIC ACCIDENT
  3. CRYOPRECIPITATES [Concomitant]
     Indication: ILL-DEFINED DISORDER
     Dosage: 10 UNITS
     Route: 042
     Dates: start: 20061102
  4. FIBRINOGEN [Concomitant]
     Indication: ILL-DEFINED DISORDER
     Dosage: UNKNOWN
     Dates: start: 20061102
  5. RED BLOOD CELLS [Concomitant]
     Indication: ILL-DEFINED DISORDER
     Dosage: 11 UNITS
     Route: 042
     Dates: start: 20061102
  6. FRESH FROZEN PLASMA [Concomitant]
     Indication: ILL-DEFINED DISORDER
     Dosage: 7 UNITS
     Dates: start: 20061102
  7. PLATELETS [Concomitant]
     Indication: ILL-DEFINED DISORDER
     Dosage: 6 PACKS
     Dates: start: 20061102
  8. COUMADIN [Concomitant]
     Indication: PULMONARY EMBOLISM
     Dates: end: 20061102
  9. COUMADIN [Concomitant]
     Indication: ATRIAL FIBRILLATION

REACTIONS (1)
  - CONCOMITANT DISEASE PROGRESSION [None]
